APPROVED DRUG PRODUCT: VYSCOXA
Active Ingredient: CELECOXIB
Strength: 10MG/ML
Dosage Form/Route: SUSPENSION;ORAL
Application: N211759 | Product #001
Applicant: CARWIN PHARMACEUTICAL ASSOCIATES LLC
Approved: Jul 29, 2025 | RLD: Yes | RS: Yes | Type: RX